FAERS Safety Report 24808979 (Version 1)
Quarter: 2025Q1

REPORT INFORMATION
  Report Type: Spontaneous
  Country: US (occurrence: US)
  Receive Date: 20250106
  Receipt Date: 20250106
  Transmission Date: 20250408
  Serious: No
  Sender: TERSERA THERAPEUTICS
  Company Number: US-TERSERA THERAPEUTICS LLC-2024TRS005865

PATIENT

DRUGS (1)
  1. PRIALT [Suspect]
     Active Substance: ZICONOTIDE ACETATE
     Indication: Pain
     Route: 037

REACTIONS (2)
  - Catheter site pain [Recovered/Resolved]
  - Implant site pain [Recovered/Resolved]

NARRATIVE: CASE EVENT DATE: 20241007
